FAERS Safety Report 10489011 (Version 1)
Quarter: 2014Q3

REPORT INFORMATION
  Report Type: Spontaneous
  Country: US (occurrence: None)
  Receive Date: 20140930
  Receipt Date: 20140930
  Transmission Date: 20150326
  Serious: Yes (Hospitalization)
  Sender: FDA-Public Use
  Company Number: 2563730

PATIENT
  Age: 9 Year
  Sex: Male

DRUGS (6)
  1. CYCLOPHOSPHAMIDE. [Suspect]
     Active Substance: CYCLOPHOSPHAMIDE
     Indication: B PRECURSOR TYPE ACUTE LEUKAEMIA
     Dates: start: 201402, end: 201404
  2. ETOPOSIDE. [Suspect]
     Active Substance: ETOPOSIDE
     Indication: B PRECURSOR TYPE ACUTE LEUKAEMIA
     Dates: start: 20140425, end: 20140429
  3. VINCRISTINE SULFATE. [Suspect]
     Active Substance: VINCRISTINE SULFATE
     Indication: B PRECURSOR TYPE ACUTE LEUKAEMIA
     Dates: start: 201402, end: 201404
  4. CYTARABINE. [Concomitant]
     Active Substance: CYTARABINE
  5. CLOFARABINE [Suspect]
     Active Substance: CLOFARABINE
     Indication: B PRECURSOR TYPE ACUTE LEUKAEMIA
     Dates: start: 20140214
  6. PEG-L-ASPARAGINASE [Suspect]
     Active Substance: PEGASPARGASE
     Indication: B PRECURSOR TYPE ACUTE LEUKAEMIA
     Dates: start: 201402, end: 201404

REACTIONS (6)
  - Pruritus [None]
  - Simplex virus test positive [None]
  - Stomatitis [None]
  - Nausea [None]
  - Infection [None]
  - Vomiting [None]

NARRATIVE: CASE EVENT DATE: 20140502
